FAERS Safety Report 12565750 (Version 4)
Quarter: 2017Q2

REPORT INFORMATION
  Report Type: Report from Study
  Country: FR (occurrence: FR)
  Receive Date: 20160718
  Receipt Date: 20170504
  Transmission Date: 20170830
  Serious: Yes (Hospitalization)
  Sender: FDA-Public Use
  Company Number: FR-AMGEN-FRANI2016090450

PATIENT
  Age: 74 Year
  Sex: Female

DRUGS (4)
  1. LEVOTHYROX [Concomitant]
     Active Substance: LEVOTHYROXINE
     Dosage: 75 MG, QD (STARTED FROM OVER 25 YEARS)
     Route: 048
  2. DENOSUMAB [Suspect]
     Active Substance: DENOSUMAB
     Indication: OSTEOPOROSIS POSTMENOPAUSAL
     Dosage: 60 MG, Q6MO
     Route: 058
     Dates: start: 20160114
  3. ZOCOR [Concomitant]
     Active Substance: SIMVASTATIN
     Dosage: 20 MG, QD (STARTED FROM OVER 5 YEARS)
     Route: 048
  4. ZYMAD [Concomitant]
     Active Substance: CHOLECALCIFEROL
     Dosage: 80000 IU/2ML, 2ML QUARTERLY
     Route: 048
     Dates: start: 20150710

REACTIONS (1)
  - Adenocarcinoma of colon [Not Recovered/Not Resolved]

NARRATIVE: CASE EVENT DATE: 20160503
